FAERS Safety Report 13132988 (Version 1)
Quarter: 2017Q1

REPORT INFORMATION
  Report Type: Spontaneous
  Country: HR (occurrence: HR)
  Receive Date: 20170120
  Receipt Date: 20170120
  Transmission Date: 20170428
  Serious: Yes (Other)
  Sender: FDA-Public Use
  Company Number: HR-TEVA-729235ACC

PATIENT
  Age: 43 Year
  Sex: Female

DRUGS (5)
  1. ESCITALOPRAM [Suspect]
     Active Substance: ESCITALOPRAM OXALATE
     Dosage: UNKNOWN
     Route: 048
     Dates: start: 20160529
  2. ERGOMETRIN LEK [Suspect]
     Active Substance: ERGONOVINE MALEATE
     Dosage: UNKNOWN
     Route: 048
     Dates: start: 20160529
  3. MIRTAZAPINE. [Suspect]
     Active Substance: MIRTAZAPINE
     Dosage: UNKNOWN
     Route: 048
     Dates: start: 20160529
  4. LAMOTRIGIN [Suspect]
     Active Substance: LAMOTRIGINE
     Dosage: UNKNOWN
     Route: 048
     Dates: start: 20160529
  5. ALPRAZOLAM. [Suspect]
     Active Substance: ALPRAZOLAM
     Dosage: UNKNOWN
     Route: 048
     Dates: start: 20160529

REACTIONS (4)
  - Somnolence [Unknown]
  - Suicide attempt [Unknown]
  - Intentional overdose [Unknown]
  - Disorientation [Unknown]

NARRATIVE: CASE EVENT DATE: 20160529
